FAERS Safety Report 25257478 (Version 1)
Quarter: 2025Q2

REPORT INFORMATION
  Report Type: Report from Study
  Country: US (occurrence: US)
  Receive Date: 20250430
  Receipt Date: 20250430
  Transmission Date: 20250717
  Serious: Yes (Hospitalization)
  Sender: PFIZER
  Company Number: US-PFIZER INC-202500088819

PATIENT
  Age: 62 Year
  Sex: Female

DRUGS (3)
  1. BRAFTOVI [Suspect]
     Active Substance: ENCORAFENIB
     Dosage: 300 MG, 1X/DAY (TAKE FOUR 75 MG CAPSULES)
     Route: 048
     Dates: start: 20241101, end: 202501
  2. BRAFTOVI [Suspect]
     Active Substance: ENCORAFENIB
     Dates: start: 202501
  3. BRAFTOVI [Suspect]
     Active Substance: ENCORAFENIB
     Dosage: 150 MG, DAILY
     Dates: start: 20250324

REACTIONS (6)
  - Stoma site haemorrhage [Unknown]
  - Hyponatraemia [Unknown]
  - Hyperglycaemia [Unknown]
  - Renal failure [Unknown]
  - Anaemia [Not Recovered/Not Resolved]
  - Shock haemorrhagic [Unknown]

NARRATIVE: CASE EVENT DATE: 20250101
